FAERS Safety Report 23428271 (Version 6)
Quarter: 2024Q4

REPORT INFORMATION
  Report Type: Spontaneous
  Country: US (occurrence: US)
  Receive Date: 20240122
  Receipt Date: 20241204
  Transmission Date: 20250114
  Serious: Yes (Other)
  Sender: PFIZER
  Company Number: US-PFIZER INC-PV202400007729

PATIENT
  Age: 39 Year
  Sex: Male

DRUGS (10)
  1. ADCETRIS [Suspect]
     Active Substance: BRENTUXIMAB VEDOTIN
     Indication: Hodgkin^s disease
     Dosage: UNK
     Route: 065
     Dates: start: 20230906, end: 20230906
  2. DACARBAZINE [Suspect]
     Active Substance: DACARBAZINE
     Indication: Hodgkin^s disease
     Dosage: UNK
     Route: 065
  3. DOXORUBICIN HYDROCHLORIDE [Suspect]
     Active Substance: DOXORUBICIN HYDROCHLORIDE
     Indication: Hodgkin^s disease
     Dosage: UNK
  4. VINBLASTINE [Suspect]
     Active Substance: VINBLASTINE
     Indication: Hodgkin^s disease
     Dosage: UNK
     Route: 065
  5. CHLORPROMAZINE [Concomitant]
     Active Substance: CHLORPROMAZINE
     Indication: Hiccups
     Dosage: 1 P.O, Q6HR, PRN
     Route: 048
     Dates: start: 20230907
  6. GRANISETRON HYDROCHLORIDE [Concomitant]
     Active Substance: GRANISETRON HYDROCHLORIDE
     Dosage: 1 P.O Q.12 HRS (BID) START THE NIGHT OF CHEMOTHERAPY
     Route: 048
     Dates: start: 20230831
  7. LIDOCAINE\PRILOCAINE [Concomitant]
     Active Substance: LIDOCAINE\PRILOCAINE
     Dosage: APPLY TO PORT SITE AT LEAST 45 MINUTES PRIOR TO CHEMOTHERAPY
     Route: 061
     Dates: start: 20230831
  8. NAPROXEN [Concomitant]
     Active Substance: NAPROXEN
     Indication: Pain
     Dosage: 1 P.O TWICE A DAY (BID) PRN PAIN- TAKE WITH FOOD
     Route: 048
     Dates: start: 20230910
  9. PROCHLORPERAZINE MALEATE [Concomitant]
     Active Substance: PROCHLORPERAZINE MALEATE
     Indication: Nausea
     Dosage: 1 P.O.Q. 6 TO 8 HOURS PRN
     Route: 048
     Dates: start: 20230831
  10. VITAMIN D2 [Concomitant]
     Active Substance: ERGOCALCIFEROL
     Dosage: 1,250 MCG (50,00 UNIT), ONCE WEEKLY FOR 12 WEEKS
     Route: 048
     Dates: start: 20230903

REACTIONS (6)
  - Abdominal pain [Recovered/Resolved]
  - Drug intolerance [Unknown]
  - Dehydration [Unknown]
  - Decreased appetite [Unknown]
  - Fatigue [Unknown]
  - Constipation [Unknown]

NARRATIVE: CASE EVENT DATE: 20230906
